FAERS Safety Report 22010398 (Version 1)
Quarter: 2023Q1

REPORT INFORMATION
  Report Type: Spontaneous
  Country: ES (occurrence: ES)
  Receive Date: 20230220
  Receipt Date: 20230220
  Transmission Date: 20230418
  Serious: Yes (Other)
  Sender: FDA-Public Use
  Company Number: ES-AEMPS-1327266

PATIENT
  Age: 78 Year
  Sex: Female

DRUGS (1)
  1. ALENDRONIC ACID [Suspect]
     Active Substance: ALENDRONIC ACID
     Indication: Spinal fracture
     Dosage: 70 MILLIGRAM, WEEKLY
     Route: 048
     Dates: start: 20221219, end: 20221219

REACTIONS (2)
  - Myalgia [Recovered/Resolved]
  - Arthralgia [Recovered/Resolved]

NARRATIVE: CASE EVENT DATE: 20221219
